FAERS Safety Report 19062686 (Version 2)
Quarter: 2022Q2

REPORT INFORMATION
  Report Type: Spontaneous
  Country: US (occurrence: US)
  Receive Date: 20210326
  Receipt Date: 20220527
  Transmission Date: 20220721
  Serious: Yes (Hospitalization)
  Sender: FDA-Public Use
  Company Number: US-MYLANLABS-2021M1017690

PATIENT
  Age: 38 Year
  Sex: Male

DRUGS (2)
  1. SOTALOL [Suspect]
     Active Substance: SOTALOL
     Indication: Atrial flutter
     Dosage: SOTALOL LOADING
     Route: 065
  2. SOTALOL [Suspect]
     Active Substance: SOTALOL
     Indication: Supraventricular tachycardia

REACTIONS (1)
  - Supraventricular tachycardia [Recovered/Resolved]
